FAERS Safety Report 21474073 (Version 2)
Quarter: 2022Q4

REPORT INFORMATION
  Report Type: Spontaneous
  Country: US (occurrence: US)
  Receive Date: 20221018
  Receipt Date: 20221027
  Transmission Date: 20230113
  Serious: No
  Sender: FDA-Public Use
  Company Number: US-DSJP-DSU-2022-137542AA

PATIENT
  Age: 59 Year
  Sex: Male

DRUGS (1)
  1. ENHERTU [Suspect]
     Active Substance: FAM-TRASTUZUMAB DERUXTECAN-NXKI
     Indication: Oesophageal adenocarcinoma
     Dosage: 500 MG, ONCE EVERY 3 WK
     Route: 042
     Dates: start: 20210513, end: 20211216

REACTIONS (5)
  - Interstitial lung disease [Unknown]
  - Pneumonitis [Unknown]
  - Pneumonia [Recovering/Resolving]
  - Traumatic lung injury [Recovering/Resolving]
  - COVID-19 [Recovering/Resolving]

NARRATIVE: CASE EVENT DATE: 20211216
